FAERS Safety Report 4818378-3 (Version None)
Quarter: 2005Q4

REPORT INFORMATION
  Report Type: 
  Country: None (occurrence: None)
  Receive Date: 20051031
  Receipt Date: 20051017
  Transmission Date: 20060501
  Serious: Yes (Other)
  Sender: FDA-Public Use
  Company Number: 2005143558

PATIENT
  Age: 7 Year
  Sex: Female
  Weight: 22.6799 kg

DRUGS (1)
  1. SUDAFED 12 HOUR [Suspect]
     Indication: MULTIPLE ALLERGIES
     Dosage: 2 TEASPOONS ONCE, ORAL
     Route: 048
     Dates: start: 20051017, end: 20051017

REACTIONS (3)
  - BLINDNESS [None]
  - DIZZINESS [None]
  - LOSS OF CONSCIOUSNESS [None]
